FAERS Safety Report 8817277 (Version 3)
Quarter: 2013Q1

REPORT INFORMATION
  Report Type: Spontaneous
  Country: US (occurrence: US)
  Receive Date: 20121004
  Receipt Date: 20130130
  Transmission Date: 20140127
  Serious: Yes (Other)
  Sender: FDA-Public Use
  Company Number: US-ELI_LILLY_AND_COMPANY-US201210000776

PATIENT
  Age: 68 Year
  Sex: Male
  Weight: 88.89 kg

DRUGS (4)
  1. ALIMTA [Suspect]
     Indication: LUNG NEOPLASM MALIGNANT
     Dosage: 1000 MG, EVERY 3 WEEKS
     Route: 042
     Dates: start: 20120822, end: 20121220
  2. VITAMIN B12 [Concomitant]
     Dosage: 1000 MG, UNK
     Route: 058
     Dates: start: 20120815, end: 20121220
  3. FOLIC ACID [Concomitant]
  4. CORTICOSTEROID NOS [Concomitant]

REACTIONS (4)
  - Haemoptysis [Recovered/Resolved]
  - Cough [Unknown]
  - Influenza [Unknown]
  - Pain in jaw [Unknown]
